FAERS Safety Report 20861301 (Version 1)
Quarter: 2022Q2

REPORT INFORMATION
  Report Type: Spontaneous
  Country: US (occurrence: US)
  Receive Date: 20220523
  Receipt Date: 20220523
  Transmission Date: 20220720
  Serious: Yes (Other)
  Sender: FDA-Public Use
  Company Number: US-PFIZER INC-202200434051

PATIENT
  Age: 40 Year
  Sex: Male

DRUGS (1)
  1. WATER [Suspect]
     Active Substance: WATER
     Indication: Vehicle solution use
     Dosage: 2-6CC TOTAL AS 6-10 SUBCUTANEOUS INJECTIONS OF 0.1CC-0.2CC PER INJECTION TO FOREHEAD GLABELLA
     Route: 058
     Dates: start: 20220315

REACTIONS (3)
  - Periorbital oedema [Not Recovered/Not Resolved]
  - Swelling face [Not Recovered/Not Resolved]
  - Pain [Not Recovered/Not Resolved]

NARRATIVE: CASE EVENT DATE: 20220315
